FAERS Safety Report 11096584 (Version 1)
Quarter: 2015Q2

REPORT INFORMATION
  Report Type: Spontaneous
  Country: GB (occurrence: GB)
  Receive Date: 20150507
  Receipt Date: 20150507
  Transmission Date: 20150821
  Serious: Yes (Other)
  Sender: FDA-Public Use
  Company Number: GB-TEVA-559977ACC

PATIENT
  Age: 77 Year
  Sex: Male
  Weight: 70 kg

DRUGS (12)
  1. SALAMOL [Concomitant]
     Active Substance: ALBUTEROL
     Dosage: INHALE TWO DOSES AS NEEDED, SALAMOL
     Route: 055
     Dates: start: 20150118
  2. TIOTROPIUM [Concomitant]
     Active Substance: TIOTROPIUM
     Dosage: 1 DOSAGE FORMS DAILY; INHALE ONE DOSE ONCE DAILY
     Route: 055
     Dates: start: 20150118
  3. BUDESONIDE. [Concomitant]
     Active Substance: BUDESONIDE
     Dosage: 4 DOSAGE FORMS DAILY; TWO PUFFS TWICE DAILY
     Dates: start: 20150118
  4. MONTELUKAST [Concomitant]
     Active Substance: MONTELUKAST SODIUM
     Dosage: 1 DOSAGE FORMS DAILY; TAKE ONE AT NIGHT
     Dates: start: 20150118
  5. LOSARTAN [Suspect]
     Active Substance: LOSARTAN
     Route: 048
     Dates: start: 20150118
  6. DIAZEPAM. [Concomitant]
     Active Substance: DIAZEPAM
     Dosage: 1 TDS, WHEN REQUIRED
     Dates: start: 20150118
  7. PARACETAMOL [Concomitant]
     Active Substance: ACETAMINOPHEN
     Dosage: TAKE 1 OR 2 THREE TIMES/DAY
     Dates: start: 20150118
  8. ALLOPURINOL. [Concomitant]
     Active Substance: ALLOPURINOL
     Dosage: 1 DOSAGE FORMS DAILY;
     Dates: start: 20150118
  9. CLOPIDOGREL [Concomitant]
     Active Substance: CLOPIDOGREL BISULFATE
     Dosage: 1 DOSAGE FORMS DAILY;
     Dates: start: 20150118
  10. QUININE [Concomitant]
     Active Substance: QUININE
     Dosage: 1 DOSAGE FORMS DAILY; 1 TO BE TAKEN EACH NIGHT
     Dates: start: 20150118
  11. PHYLLOCONTIN [Concomitant]
     Active Substance: AMINOPHYLLINE
     Dosage: 2 DOSAGE FORMS DAILY;
     Dates: start: 20150118
  12. SIMVASTATIN. [Concomitant]
     Active Substance: SIMVASTATIN
     Dosage: 1 DOSAGE FORMS DAILY; TAKE ONE AT NIGHT
     Dates: start: 20150118

REACTIONS (4)
  - Asthenia [Recovered/Resolved]
  - Dyspnoea [Recovered/Resolved]
  - Malaise [Recovered/Resolved]
  - Abasia [Recovered/Resolved]

NARRATIVE: CASE EVENT DATE: 20150401
